FAERS Safety Report 9022881 (Version 1)
Quarter: 2013Q1

REPORT INFORMATION
  Report Type: Spontaneous
  Country: US (occurrence: US)
  Receive Date: 20130120
  Receipt Date: 20130120
  Transmission Date: 20140127
  Serious: No
  Sender: FDA-Public Use
  Company Number: US-ALLERGAN-1216857US

PATIENT
  Age: 47 Year
  Sex: Female

DRUGS (1)
  1. BOTOX? [Suspect]
     Indication: MIGRAINE
     Dosage: 160 UNITS, SINGLE

REACTIONS (3)
  - Torticollis [Recovering/Resolving]
  - Neck pain [Recovering/Resolving]
  - Musculoskeletal discomfort [Recovering/Resolving]
